FAERS Safety Report 5870475-X (Version None)
Quarter: 2008Q3

REPORT INFORMATION
  Report Type: 
  Country: None (occurrence: None)
  Receive Date: 20080904
  Receipt Date: 20080222
  Transmission Date: 20090109
  Serious: No
  Sender: FDA-Public Use
  Company Number: US-BRISTOL-MYERS SQUIBB COMPANY-14088173

PATIENT
  Age: 64 Year
  Sex: Female

DRUGS (4)
  1. DEFINITY [Suspect]
  2. SIMVASTATIN [Concomitant]
  3. ZIAC [Concomitant]
  4. NEXIUM [Concomitant]

REACTIONS (2)
  - CHEST PAIN [None]
  - HYPOTENSION [None]
